FAERS Safety Report 6638140-9 (Version None)
Quarter: 2010Q1

REPORT INFORMATION
  Report Type: 
  Country: None (occurrence: None)
  Receive Date: 20100312
  Receipt Date: 20100302
  Transmission Date: 20100710
  Serious: Yes (Death, Hospitalization)
  Sender: FDA-Public Use
  Company Number: US-JNJFOC-20100301506

PATIENT
  Age: 89 Year
  Sex: Male

DRUGS (3)
  1. DACOGEN [Suspect]
     Indication: ACUTE MYELOID LEUKAEMIA
     Dosage: 20 MG/M2, 1 IN 1 DAY, INTRAVENOUS
     Route: 042
     Dates: start: 20100204, end: 20100208
  2. CYTARABINE (CYTARABINE) UNSPECIFIED [Suspect]
     Indication: ACUTE MYELOID LEUKAEMIA
     Dosage: 20 MG/M2, 1 IN 1 DAY, SUBCUTANEOUS
     Route: 058
     Dates: start: 20100204, end: 20100208
  3. G-CSF (GRANULOCYTE COLONY STIMULATING FACTOR) UNSPECIFIED [Suspect]
     Indication: ACUTE MYELOID LEUKAEMIA
     Dosage: 5 UG/KG, 1 IN 1 DAY, SUBCUTANEOUS
     Route: 058
     Dates: start: 20100204, end: 20100208

REACTIONS (9)
  - ABDOMINAL DISTENSION [None]
  - CONSTIPATION [None]
  - LEFT VENTRICULAR DYSFUNCTION [None]
  - LUNG INFECTION [None]
  - PLEURAL EFFUSION [None]
  - PNEUMONIA [None]
  - THROMBOCYTOPENIA [None]
  - URINARY BLADDER HAEMORRHAGE [None]
  - URINARY RETENTION [None]
